FAERS Safety Report 4872091-5 (Version None)
Quarter: 2005Q4

REPORT INFORMATION
  Report Type: 
  Country: None (occurrence: None)
  Receive Date: 20051230
  Receipt Date: 20051219
  Transmission Date: 20060501
  Serious: Yes (Hospitalization, Other)
  Sender: FDA-Public Use
  Company Number: 2005160828

PATIENT
  Age: 59 Year
  Sex: Male
  Weight: 69.4003 kg

DRUGS (3)
  1. ZOLOFT [Suspect]
     Indication: PANIC ATTACK
     Dosage: 50 MG (50 MG, 1 IN 1 D), ORAL
     Route: 048
     Dates: start: 20050701, end: 20050701
  2. NEURONTIN [Suspect]
     Indication: NEURALGIA
     Dosage: 1200 MG (300 MG,4 IN 1 D), ORAL
     Route: 048
     Dates: start: 20051024
  3. ATIVAN [Suspect]
     Indication: PANIC ATTACK
     Dosage: 3 MG (0.5 MG,6 IN 1 D), ORAL
     Route: 048
     Dates: start: 20050101

REACTIONS (24)
  - ABNORMAL BEHAVIOUR [None]
  - AGITATION [None]
  - ASTHENIA [None]
  - COUGH [None]
  - DECREASED APPETITE [None]
  - DRUG DEPENDENCE [None]
  - DRUG WITHDRAWAL SYNDROME [None]
  - FEAR [None]
  - FEELING ABNORMAL [None]
  - HALLUCINATION [None]
  - INCORRECT DOSE ADMINISTERED [None]
  - INFLUENZA LIKE ILLNESS [None]
  - INSOMNIA [None]
  - MALAISE [None]
  - MENTAL DISORDER [None]
  - MUSCLE TIGHTNESS [None]
  - NAUSEA [None]
  - NERVOUSNESS [None]
  - NEURALGIA [None]
  - PAIN [None]
  - PANIC ATTACK [None]
  - SUICIDAL IDEATION [None]
  - TREMOR [None]
  - WEIGHT DECREASED [None]
